FAERS Safety Report 6014568-5 (Version None)
Quarter: 2008Q4

REPORT INFORMATION
  Report Type: 
  Country: None (occurrence: None)
  Receive Date: 20081219
  Receipt Date: 20080822
  Transmission Date: 20090506
  Serious: No
  Sender: FDA-Public Use
  Company Number: A0743988A

PATIENT
  Age: 58 Year
  Sex: Male

DRUGS (9)
  1. AVODART [Suspect]
     Indication: BENIGN PROSTATIC HYPERPLASIA
     Dosage: .5MG PER DAY
     Route: 048
     Dates: start: 20080101
  2. UROXATRAL [Concomitant]
  3. BENICAR [Concomitant]
  4. CEPHALEXIN [Concomitant]
  5. DILTIAZEM [Concomitant]
  6. LYCOPENE [Concomitant]
  7. DAILY VITAMIN [Concomitant]
  8. ADVAIR DISKUS 100/50 [Concomitant]
  9. ALBUTEROL [Concomitant]

REACTIONS (4)
  - DRUG INEFFECTIVE [None]
  - POLLAKIURIA [None]
  - RESIDUAL URINE [None]
  - URINE FLOW DECREASED [None]
